FAERS Safety Report 10691804 (Version 1)
Quarter: 2015Q1

REPORT INFORMATION
  Report Type: Spontaneous
  Country: US (occurrence: US)
  Receive Date: 20150105
  Receipt Date: 20150105
  Transmission Date: 20150720
  Serious: No
  Sender: FDA-Public Use
  Company Number: US-GLAXOSMITHKLINE-A1063937A

PATIENT

DRUGS (7)
  1. GLIMEPIRIDE. [Concomitant]
     Active Substance: GLIMEPIRIDE
  2. PRAVASTATIN [Concomitant]
     Active Substance: PRAVASTATIN\PRAVASTATIN SODIUM
  3. METFORMIN [Concomitant]
     Active Substance: METFORMIN HYDROCHLORIDE
  4. JANUVIA [Concomitant]
     Active Substance: SITAGLIPTIN PHOSPHATE
  5. LOVAZA [Suspect]
     Active Substance: OMEGA-3-ACID ETHYL ESTERS
     Indication: PRODUCT USED FOR UNKNOWN INDICATION
     Dosage: 4 TABLETS PER DAY. PATIENT DECREASED TO 2 TABLETS PER DAY. THEN, INCREASED BACK TO 4 TABLETS PE[...]
     Route: 065
  6. ENALAPRIL [Concomitant]
     Active Substance: ENALAPRIL
  7. ZOLOFT [Concomitant]
     Active Substance: SERTRALINE HYDROCHLORIDE

REACTIONS (4)
  - Blood triglycerides increased [Unknown]
  - Blood cholesterol increased [Unknown]
  - Drug dose omission [Unknown]
  - Underdose [Unknown]
